FAERS Safety Report 5608340-5 (Version None)
Quarter: 2008Q1

REPORT INFORMATION
  Report Type: 
  Country: None (occurrence: None)
  Receive Date: 20080130
  Receipt Date: 20080123
  Transmission Date: 20080703
  Serious: Yes (Hospitalization)
  Sender: FDA-Public Use
  Company Number: DE-BOEHRINGER INGELHEIM GMBH, GERMANY-2007-DE-07480DE

PATIENT
  Sex: Female
  Weight: 90 kg

DRUGS (4)
  1. MICARDIS [Suspect]
     Indication: HYPERTENSION
     Route: 048
  2. BISOPROLOL FUMARATE [Concomitant]
  3. TOREM [Concomitant]
  4. PANTOZOL [Concomitant]

REACTIONS (1)
  - HYPERTENSIVE CRISIS [None]
